FAERS Safety Report 6237861-X (Version None)
Quarter: 2009Q2

REPORT INFORMATION
  Report Type: 
  Country: None (occurrence: None)
  Receive Date: 20090617
  Receipt Date: 20090601
  Transmission Date: 20091009
  Serious: Yes (Other)
  Sender: FDA-Public Use
  Company Number: 2009RR-24773

PATIENT
  Age: 5 Year
  Sex: Male

DRUGS (5)
  1. IBUPROFEN [Suspect]
     Indication: PYREXIA
     Dosage: 100 MG, SINGLE, RECTAL
     Route: 054
  2. ACETAMINOPHEN [Suspect]
     Indication: PYREXIA
  3. AZATHIOPRINE [Concomitant]
  4. CYCLOSPORINE [Concomitant]
  5. PREDNISOLONE [Concomitant]

REACTIONS (2)
  - ANURIA [None]
  - NEPHROPATHY TOXIC [None]
